FAERS Safety Report 6448174-5 (Version None)
Quarter: 2009Q4

REPORT INFORMATION
  Report Type: 
  Country: None (occurrence: None)
  Receive Date: 20091120
  Receipt Date: 20091006
  Transmission Date: 20100525
  Serious: No
  Sender: FDA-Public Use
  Company Number: US-BAYER-200936971NA

PATIENT
  Age: 25 Year
  Sex: Male

DRUGS (1)
  1. EOVIST [Suspect]
     Indication: UNEVALUABLE EVENT
     Route: 042
     Dates: start: 20091006, end: 20091006

REACTIONS (5)
  - INJECTION SITE ANAESTHESIA [None]
  - INJECTION SITE ERYTHEMA [None]
  - INJECTION SITE PARAESTHESIA [None]
  - INJECTION SITE RASH [None]
  - INJECTION SITE REACTION [None]
